FAERS Safety Report 5789448-0 (Version None)
Quarter: 2008Q2

REPORT INFORMATION
  Report Type: 
  Country: None (occurrence: None)
  Receive Date: 20080626
  Receipt Date: 20080227
  Transmission Date: 20081010
  Serious: No
  Sender: FDA-Public Use
  Company Number: US-ASTRAZENECA-2008UW02805

PATIENT
  Age: 16469 Day
  Sex: Female
  Weight: 47.6 kg

DRUGS (3)
  1. PULMICORT FLEXHALER [Suspect]
     Indication: ASTHMA
     Route: 055
     Dates: start: 20080128, end: 20080208
  2. ALBUTEROL [Concomitant]
     Indication: ASTHMA
     Route: 055
  3. CLINDAMAX VAGINAL CREAM [Concomitant]
     Indication: VAGINAL INFECTION
     Route: 067
     Dates: start: 20080208, end: 20080214

REACTIONS (3)
  - CONDITION AGGRAVATED [None]
  - COUGH [None]
  - WHEEZING [None]
